FAERS Safety Report 13042528 (Version 1)
Quarter: 2016Q4

REPORT INFORMATION
  Report Type: Spontaneous
  Country: JP (occurrence: JP)
  Receive Date: 20161219
  Receipt Date: 20161219
  Transmission Date: 20170207
  Serious: Yes (Death, Life-Threatening, Other)
  Sender: FDA-Public Use
  Company Number: JP-HERITAGE PHARMACEUTICALS-2016HTG00304

PATIENT
  Age: 2 Year
  Sex: Male
  Weight: 11.5 kg

DRUGS (1)
  1. NIFEDIPINE. [Suspect]
     Active Substance: NIFEDIPINE
     Dosage: UNK, ONCE
     Route: 048

REACTIONS (4)
  - Seizure [Not Recovered/Not Resolved]
  - Toxicity to various agents [Fatal]
  - Accidental exposure to product by child [Fatal]
  - Cardiac arrest [Not Recovered/Not Resolved]
